FAERS Safety Report 15466466 (Version 3)
Quarter: 2018Q4

REPORT INFORMATION
  Report Type: Spontaneous
  Country: DE (occurrence: DE)
  Receive Date: 20181004
  Receipt Date: 20181207
  Transmission Date: 20190204
  Serious: Yes (Life-Threatening, Hospitalization, Other)
  Sender: FDA-Public Use
  Company Number: DE-BRISTOL-MYERS SQUIBB COMPANY-BMS-2018-091643

PATIENT
  Sex: Male
  Weight: 100 kg

DRUGS (1)
  1. OPDIVO [Suspect]
     Active Substance: NIVOLUMAB
     Indication: PRODUCT USED FOR UNKNOWN INDICATION
     Dosage: 3 MG/KG, Q2WK
     Route: 065
     Dates: start: 20180619, end: 20180828

REACTIONS (5)
  - Pancreatitis [Unknown]
  - Renal failure [Unknown]
  - Ketoacidosis [Unknown]
  - Diabetes mellitus [Unknown]
  - Hyperthyroidism [Unknown]
